FAERS Safety Report 17247280 (Version 1)
Quarter: 2020Q1

REPORT INFORMATION
  Report Type: Spontaneous
  Country: JP (occurrence: JP)
  Receive Date: 20200108
  Receipt Date: 20200108
  Transmission Date: 20200409
  Serious: Yes (Hospitalization, Other)
  Sender: FDA-Public Use
  Company Number: JP-CELGENEUS-JPN-20191201010

PATIENT
  Age: 88 Year
  Sex: Female

DRUGS (2)
  1. ISTODAX [Suspect]
     Active Substance: ROMIDEPSIN
     Indication: PERIPHERAL T-CELL LYMPHOMA UNSPECIFIED
     Route: 041
     Dates: start: 20191128, end: 20191128
  2. ISTODAX [Suspect]
     Active Substance: ROMIDEPSIN
     Route: 041
     Dates: start: 201912, end: 20200102

REACTIONS (6)
  - Platelet count decreased [Recovered/Resolved]
  - Peripheral T-cell lymphoma unspecified [Not Recovered/Not Resolved]
  - Peripheral T-cell lymphoma unspecified [Unknown]
  - Pyrexia [Not Recovered/Not Resolved]
  - Chest pain [Recovered/Resolved]
  - Blood magnesium decreased [Unknown]

NARRATIVE: CASE EVENT DATE: 2019
